FAERS Safety Report 12332423 (Version 1)
Quarter: 2016Q2

REPORT INFORMATION
  Report Type: Spontaneous
  Country: US (occurrence: US)
  Receive Date: 20160504
  Receipt Date: 20160504
  Transmission Date: 20160815
  Serious: No
  Sender: FDA-Public Use
  Company Number: US-ROCHE-1662502

PATIENT
  Sex: Female

DRUGS (3)
  1. SYNTHROID [Concomitant]
     Active Substance: LEVOTHYROXINE SODIUM
  2. ESBRIET [Suspect]
     Active Substance: PIRFENIDONE
     Indication: PULMONARY FIBROSIS
     Dosage: 3 PILLS
     Route: 065
     Dates: start: 201408
  3. PERCODAN (UNITED STATES) [Concomitant]

REACTIONS (4)
  - Nausea [Unknown]
  - Ill-defined disorder [Unknown]
  - Feeding disorder [Unknown]
  - Gastroenteritis viral [Unknown]
